FAERS Safety Report 22156152 (Version 1)
Quarter: 2023Q1

REPORT INFORMATION
  Report Type: Spontaneous
  Country: TR (occurrence: TR)
  Receive Date: 20230330
  Receipt Date: 20230330
  Transmission Date: 20230417
  Serious: Yes (Hospitalization, Other)
  Sender: FDA-Public Use
  Company Number: TR-ABBVIE-4696666

PATIENT
  Age: 42 Year
  Sex: Male
  Weight: 84 kg

DRUGS (3)
  1. SKYRIZI [Suspect]
     Active Substance: RISANKIZUMAB-RZAA
     Indication: Psoriasis
     Dosage: FORM STRENGTH: 75 MILLIGRAM
     Route: 058
     Dates: start: 20220601
  2. Metformin(GLIFOR) [Concomitant]
     Indication: Diabetes mellitus
     Dosage: 2000 MILLIGRAM?FORM STRENGTH: 1000 MILLIGRAM
     Route: 048
  3. Metoprolol(BELOC ZOK) [Concomitant]
     Indication: Arrhythmia
     Dosage: FORM STRENGTH: 50 MILLIGRAM
     Route: 048

REACTIONS (5)
  - Gallbladder polyp [Not Recovered/Not Resolved]
  - Hepatic steatosis [Unknown]
  - Cholelithiasis [Recovered/Resolved]
  - Vomiting [Recovered/Resolved]
  - Pain [Recovered/Resolved]

NARRATIVE: CASE EVENT DATE: 20220601
